FAERS Safety Report 16499878 (Version 3)
Quarter: 2019Q3

REPORT INFORMATION
  Report Type: Spontaneous
  Country: BR (occurrence: BR)
  Receive Date: 20190701
  Receipt Date: 20190909
  Transmission Date: 20191004
  Serious: Yes (Hospitalization)
  Sender: FDA-Public Use
  Company Number: BR-BEH-2019103600

PATIENT
  Age: 12 Year
  Sex: Female
  Weight: 42 kg

DRUGS (6)
  1. MYCOPHENOLATE SODIUM [Concomitant]
     Active Substance: MYCOPHENOLATE SODIUM
     Dosage: 360 MILLIGRAM, QID
  2. LUPRON DEPOT [Concomitant]
     Active Substance: LEUPROLIDE ACETATE
     Indication: PRECOCIOUS PUBERTY
     Dosage: UNK, Q84D
  3. HIZENTRA [Suspect]
     Active Substance: HUMAN IMMUNOGLOBULIN G
     Indication: IMMUNODEFICIENCY COMMON VARIABLE
     Dosage: 16 GRAM, TOT
     Route: 065
     Dates: start: 20190501, end: 20190501
  4. HIZENTRA [Suspect]
     Active Substance: HUMAN IMMUNOGLOBULIN G
     Indication: INFECTION
  5. SOMATOTROPIN (HUMAN) [Concomitant]
     Active Substance: SOMATROPIN
     Indication: BLOOD GROWTH HORMONE
     Dosage: UNK, QD
  6. VITAMIN D NOS [Concomitant]
     Active Substance: VITAMIN D NOS
     Dosage: 7000 UNK, QW

REACTIONS (5)
  - Nausea [Recovered/Resolved]
  - White blood cell count increased [Recovered/Resolved]
  - Headache [Recovered/Resolved]
  - Meningitis [Recovered/Resolved]
  - Musculoskeletal stiffness [Recovered/Resolved]

NARRATIVE: CASE EVENT DATE: 20190503
